FAERS Safety Report 11473286 (Version 1)
Quarter: 2015Q3

REPORT INFORMATION
  Report Type: Report from Study
  Country: US (occurrence: US)
  Receive Date: 20150908
  Receipt Date: 20150908
  Transmission Date: 20151125
  Serious: No
  Sender: FDA-Public Use
  Company Number: PHEH2015US017333

PATIENT
  Sex: Male

DRUGS (1)
  1. EXTAVIA [Suspect]
     Active Substance: INTERFERON BETA-1B
     Indication: MULTIPLE SCLEROSIS
     Dosage: 0.0625 MG (0.25ML), EVERY OTHER DAY
     Route: 058
     Dates: start: 20150828

REACTIONS (4)
  - Pyrexia [Unknown]
  - Feeling hot [Unknown]
  - Pain [Unknown]
  - Gait disturbance [Unknown]
